FAERS Safety Report 4629231-2 (Version None)
Quarter: 2005Q2

REPORT INFORMATION
  Report Type: 
  Country: None (occurrence: None)
  Receive Date: 20050404
  Receipt Date: 20050404
  Transmission Date: 20051028
  Serious: No
  Sender: FDA-Public Use
  Company Number: None

PATIENT
  Age: 44 Year
  Sex: Female
  Weight: 83.9154 kg

DRUGS (2)
  1. METHYLPREDNISOLONE [Suspect]
     Indication: CATARACT SUBCAPSULAR
     Dosage: 4 ROUNDS A/C EVERY 21 DAYS
  2. PREDNISONE [Suspect]
     Dosage: 2 ROUNDS TAXOTERE EVERY 21 DAYS

REACTIONS (2)
  - CATARACT SUBCAPSULAR [None]
  - VISUAL DISTURBANCE [None]
